FAERS Safety Report 9025961 (Version 4)
Quarter: 2013Q2

REPORT INFORMATION
  Report Type: Spontaneous
  Country: FR (occurrence: FR)
  Receive Date: 20130122
  Receipt Date: 20130626
  Transmission Date: 20140414
  Serious: Yes (Other)
  Sender: FDA-Public Use
  Company Number: FR-ROCHE-1181439

PATIENT
  Age: 25 Year
  Sex: Female
  Weight: 51 kg

DRUGS (1)
  1. AVASTIN [Suspect]
     Indication: ACOUSTIC NEUROMA
     Dosage: 25 MG/ML
     Route: 042
     Dates: start: 201206

REACTIONS (2)
  - Tooth fracture [Not Recovered/Not Resolved]
  - Dental caries [Not Recovered/Not Resolved]
